FAERS Safety Report 7184268-7 (Version None)
Quarter: 2010Q4

REPORT INFORMATION
  Report Type: 
  Country: None (occurrence: None)
  Receive Date: 20101123
  Receipt Date: 20100817
  Transmission Date: 20110411
  Serious: No
  Sender: FDA-Public Use
  Company Number: 016949

PATIENT
  Sex: Female
  Weight: 42.6 kg

DRUGS (8)
  1. CIMZIA [Suspect]
     Indication: CROHN'S DISEASE
     Dosage: (SUBCUTANEOUS) ; (400 MG 1X/2 WEEKS SUBCUTANEOUS)
     Route: 058
     Dates: start: 20100101, end: 20100601
  2. CIMZIA [Suspect]
     Indication: CROHN'S DISEASE
     Dosage: (SUBCUTANEOUS) ; (400 MG 1X/2 WEEKS SUBCUTANEOUS)
     Route: 058
     Dates: start: 20100727
  3. LUPRON [Concomitant]
  4. NOREPINEPHRINE BITARTRATE [Concomitant]
  5. GABAPENTIN [Concomitant]
  6. ABILIFY [Concomitant]
  7. XANAX [Concomitant]
  8. WELLBUTRIN [Concomitant]

REACTIONS (15)
  - ABDOMINAL PAIN UPPER [None]
  - APHONIA [None]
  - ARTHRALGIA [None]
  - ASTHENIA [None]
  - BACK PAIN [None]
  - CHEST PAIN [None]
  - CHILLS [None]
  - DISCOMFORT [None]
  - DYSPHONIA [None]
  - DYSURIA [None]
  - FEELING HOT [None]
  - HAEMATOCHEZIA [None]
  - HEADACHE [None]
  - NAUSEA [None]
  - PAIN [None]
